FAERS Safety Report 9706965 (Version 1)
Quarter: 2013Q4

REPORT INFORMATION
  Report Type: Spontaneous
  Country: US (occurrence: None)
  Receive Date: 20131122
  Receipt Date: 20131122
  Transmission Date: 20140711
  Serious: No
  Sender: FDA-Public Use
  Company Number: None

PATIENT
  Age: 74 Year
  Sex: Male
  Weight: 93.9 kg

DRUGS (1)
  1. RANITIDINE [Suspect]
     Route: 048
     Dates: start: 20130925

REACTIONS (2)
  - Abdominal discomfort [None]
  - Product taste abnormal [None]
